FAERS Safety Report 25813443 (Version 3)
Quarter: 2025Q4

REPORT INFORMATION
  Report Type: Spontaneous
  Country: US (occurrence: US)
  Receive Date: 20250917
  Receipt Date: 20251106
  Transmission Date: 20260118
  Serious: No
  Sender: LUPIN
  Company Number: US-LUPIN PHARMACEUTICALS INC.-2025-08304

PATIENT

DRUGS (2)
  1. ALBUTEROL SULFATE [Suspect]
     Active Substance: ALBUTEROL SULFATE
     Indication: Dyspnoea
     Dosage: 2-PUFFS EVERY 04 -06 HRS AS NEEDED PRN
  2. ALBUTEROL SULFATE [Suspect]
     Active Substance: ALBUTEROL SULFATE
     Indication: Cough

REACTIONS (4)
  - Off label use [Unknown]
  - Drug dose omission by device [Unknown]
  - Wrong technique in device usage process [Unknown]
  - Wrong technique in product usage process [Unknown]
